FAERS Safety Report 12995668 (Version 2)
Quarter: 2017Q1

REPORT INFORMATION
  Report Type: Spontaneous
  Country: SG (occurrence: SG)
  Receive Date: 20161202
  Receipt Date: 20170131
  Transmission Date: 20170428
  Serious: Yes (Death, Life-Threatening, Other)
  Sender: FDA-Public Use
  Company Number: SG-ELI_LILLY_AND_COMPANY-SG201611009055

PATIENT
  Age: 42 Year
  Sex: Male

DRUGS (2)
  1. CYRAMZA [Suspect]
     Active Substance: RAMUCIRUMAB
     Indication: ADENOCARCINOMA GASTRIC
     Dosage: 530 MG, CYCLICAL
     Route: 065
     Dates: start: 20161108
  2. PACLITAXEL. [Concomitant]
     Active Substance: PACLITAXEL
     Indication: ADENOCARCINOMA GASTRIC
     Dosage: UNK, CYCLICAL
     Route: 065
     Dates: start: 20161101

REACTIONS (5)
  - Disease progression [Unknown]
  - Rectal haemorrhage [Unknown]
  - General physical health deterioration [Unknown]
  - Death [Fatal]
  - Haemothorax [Unknown]

NARRATIVE: CASE EVENT DATE: 201611
